FAERS Safety Report 8619154-6 (Version None)
Quarter: 2012Q3

REPORT INFORMATION
  Report Type: 
  Country: None (occurrence: None)
  Receive Date: 20120824
  Receipt Date: 20120726
  Transmission Date: 20120928
  Serious: Yes (Other)
  Sender: FDA-Public Use
  Company Number: JP-009507513-2012SP025012

PATIENT

DRUGS (27)
  1. PEG-INTRON [Suspect]
     Dosage: 1.5MCG/KG/WEEK
     Route: 058
     Dates: start: 20120120, end: 20120706
  2. URSO 250 [Concomitant]
     Indication: HEPATITIS C
     Dosage: FORMULATION: POR-DETAILS UNKNOWN
     Route: 048
     Dates: end: 20120216
  3. CELEBREX [Concomitant]
     Indication: ARTHRALGIA
     Route: 048
  4. PEG-INTRON [Suspect]
     Indication: HEPATITIS C
     Dosage: 1.5 ?G/KG, QW
     Route: 058
     Dates: start: 20120120
  5. REBETOL [Suspect]
     Route: 048
     Dates: start: 20120629, end: 20120706
  6. CEREKINON [Concomitant]
     Route: 048
  7. [THERAPY UNSPECIFIED] [Concomitant]
     Indication: PROPHYLAXIS
     Dosage: AS NEEDED
     Route: 051
     Dates: end: 20120706
  8. ANTIVIRAL (UNSPECIFIED) [Suspect]
     Dosage: 1000 MG, QD
     Route: 048
     Dates: start: 20120309
  9. CALCIUM CHLORIDE (+) POTASSIUM CHLORIDE (+) SODIUM CHLORIDE (+) SODIUM [Concomitant]
     Indication: PRODUCT USED FOR UNKNOWN INDICATION
     Dosage: 500 ML, QD
     Route: 042
     Dates: start: 20120309, end: 20120316
  10. VOLTAREN [Concomitant]
     Indication: PROPHYLAXIS
     Dosage: AS NEEDED
     Route: 048
     Dates: start: 20120120, end: 20120401
  11. TELAVIC [Suspect]
     Route: 048
     Dates: start: 20120309
  12. REBETOL [Suspect]
     Dosage: 400 MG, QD
     Route: 048
     Dates: start: 20120210, end: 20120308
  13. NEXIUM [Concomitant]
     Route: 048
  14. HEPARINOID [Concomitant]
     Dosage: FORMULATION : LOT-DETAILS UNKNOWN
     Route: 061
  15. REBETOL [Suspect]
     Indication: HEPATITIS C
     Dosage: 600 MG, QD
     Route: 048
     Dates: start: 20120120, end: 20120209
  16. REBETOL [Suspect]
     Dosage: 200 MG, QD
     Route: 048
     Dates: start: 20120309, end: 20120315
  17. ANTIVIRAL (UNSPECIFIED) [Suspect]
     Indication: HEPATITIS C
     Dosage: 1500 MG, QD
     Route: 048
     Dates: start: 20120120, end: 20120308
  18. REBETOL [Suspect]
     Dosage: 200MG/EVERY OTHER DAY
     Route: 048
     Dates: start: 20120330, end: 20120524
  19. CEREKINON [Concomitant]
     Indication: IRRITABLE BOWEL SYNDROME
     Dosage: 300 MG, QD
     Route: 048
  20. TELAVIC [Suspect]
     Indication: HEPATITIS C
     Route: 048
     Dates: start: 20120120, end: 20120308
  21. HIRUDOID [Concomitant]
     Indication: PROPHYLAXIS
     Dosage: Q.S./DAY, AS NEEDED
     Route: 061
     Dates: start: 20120120
  22. REBETOL [Suspect]
     Dosage: 200 MG, UNKNOWN
     Route: 048
     Dates: start: 20120330
  23. NEXIUM [Concomitant]
     Indication: GASTROOESOPHAGEAL REFLUX DISEASE
     Dosage: FORMULATION : POR-DETAILS UNKNOWN
     Route: 048
  24. CELECOXIB [Concomitant]
     Indication: ARTHRALGIA
     Dosage: FORMULATION : POR-DETAILS UNKNOWN
     Route: 048
  25. HEPARINOID [Concomitant]
     Indication: PROPHYLAXIS
     Dosage: FORMULATION :OIT-DETAILS UNKNOWN
     Route: 061
     Dates: start: 20120120
  26. ALLOPURINOL [Concomitant]
     Indication: HYPERURICAEMIA
     Dosage: 200 MG, QD
     Route: 048
     Dates: start: 20120224
  27. [THERAPY UNSPECIFIED] [Concomitant]
     Indication: IRRITABLE BOWEL SYNDROME
     Route: 048

REACTIONS (3)
  - RENAL IMPAIRMENT [None]
  - PERICARDIAL EFFUSION [None]
  - HAEMOGLOBIN DECREASED [None]
